FAERS Safety Report 9169435 (Version 1)
Quarter: 2013Q1

REPORT INFORMATION
  Report Type: Report from Study
  Country: GB (occurrence: GB)
  Receive Date: 20130318
  Receipt Date: 20130318
  Transmission Date: 20140127
  Serious: Yes (Hospitalization)
  Sender: FDA-Public Use
  Company Number: GB-TEVA-381664ISR

PATIENT
  Age: 65 Year
  Sex: Male

DRUGS (19)
  1. OXALIPLATIN [Suspect]
     Indication: COLORECTAL CANCER
     Dosage: 175 MILLIGRAM DAILY; ON DAY 1 AND 15
     Route: 042
     Dates: start: 20121115, end: 20121212
  2. LEUCOVORIN CALCIUM [Suspect]
     Indication: COLORECTAL CANCER
     Dosage: DAYS 1 AND 15
     Route: 042
     Dates: start: 20121115, end: 20121212
  3. TIVOZANIB [Suspect]
     Indication: COLORECTAL CANCER
     Dosage: 1.5 MILLIGRAM DAILY;
     Route: 048
     Dates: start: 20121115, end: 20121224
  4. 5 FU [Suspect]
     Indication: COLORECTAL CANCER
     Dosage: 825 MILLIGRAM DAILY; ON DAY 1 AND 15
     Route: 040
     Dates: start: 20121115, end: 20121212
  5. 5 FU [Suspect]
     Dosage: 4900 MILLIGRAM DAILY; ON DAY 1 AND 15
     Route: 042
     Dates: start: 20121115, end: 20121212
  6. INSULIN HUMAN [Concomitant]
     Dates: start: 1997
  7. METFORMIN [Concomitant]
     Dates: start: 2007
  8. LEVEMIR [Concomitant]
     Dates: start: 2007
  9. LOPERAMIDE [Concomitant]
     Dates: start: 200912
  10. FINASTERIDE [Concomitant]
     Dates: start: 201111
  11. AMLODIPINE [Concomitant]
     Dates: start: 201211
  12. SIMVASTATIN [Concomitant]
     Dates: start: 2002
  13. TAMSULOSIN [Concomitant]
     Dates: start: 200711
  14. OMEPRAZOLE [Concomitant]
     Dates: start: 201206
  15. FERROUS SULFATE [Concomitant]
     Dates: start: 201108
  16. ONDANSETRON [Concomitant]
     Dates: start: 20121128, end: 20121128
  17. CYCLIZINE [Concomitant]
     Dates: start: 20121128, end: 20121130
  18. METOCLOPRAMIDE [Concomitant]
     Dates: start: 20121128, end: 20121202
  19. CODEINE PHOSPHATE [Concomitant]
     Dates: start: 20121128

REACTIONS (1)
  - Troponin increased [Recovered/Resolved]
